FAERS Safety Report 5885698-3 (Version None)
Quarter: 2008Q3

REPORT INFORMATION
  Report Type: 
  Country: None (occurrence: None)
  Receive Date: 20080912
  Receipt Date: 20080909
  Transmission Date: 20090109
  Serious: Yes (Other)
  Sender: FDA-Public Use
  Company Number: 2008SP018670

PATIENT
  Age: 76 Year
  Sex: Female
  Weight: 52 kg

DRUGS (5)
  1. PEG-INTRON [Suspect]
     Indication: HEPATITIS C
     Dosage: 78 MCG; QW; SC
     Route: 058
     Dates: start: 20071128, end: 20080819
  2. REBETOL [Suspect]
     Indication: HEPATITIS C
     Dosage: 600 MG; QD; PO
     Route: 048
     Dates: start: 20071128, end: 20080819
  3. LOXONIN (CON.) [Concomitant]
  4. BERIZYM (CON.) [Concomitant]
  5. DOGMATYL (CON.) [Concomitant]

REACTIONS (1)
  - DEMENTIA [None]
